FAERS Safety Report 4844949-4 (Version None)
Quarter: 2005Q4

REPORT INFORMATION
  Report Type: 
  Country: None (occurrence: None)
  Receive Date: 20051128
  Receipt Date: 20051108
  Transmission Date: 20060501
  Serious: Yes (Hospitalization)
  Sender: FDA-Public Use
  Company Number: DSA_27303_2005

PATIENT
  Age: 14 Year
  Sex: Female

DRUGS (2)
  1. TAVOR [Suspect]
     Dosage: 15 MG ONCE PO
     Route: 048
     Dates: start: 20051018, end: 20051018
  2. NOVALGIN /SCH/ [Suspect]
     Dosage: DF ONCE PO
     Route: 048
     Dates: start: 20051018, end: 20051018

REACTIONS (3)
  - FATIGUE [None]
  - INTENTIONAL OVERDOSE [None]
  - TACHYCARDIA [None]
